FAERS Safety Report 14694576 (Version 1)
Quarter: 2018Q1

REPORT INFORMATION
  Report Type: Other
  Country: JP (occurrence: JP)
  Receive Date: 20180329
  Receipt Date: 20180329
  Transmission Date: 20180509
  Serious: No
  Sender: FDA-Public Use
  Company Number: JP--2017-JP-000015

PATIENT
  Age: 65 Year
  Sex: Female

DRUGS (4)
  1. AMOXICILLIN. [Suspect]
     Active Substance: AMOXICILLIN
     Indication: HELICOBACTER INFECTION
     Dates: start: 201507
  2. PREDNISOLONE. [Concomitant]
     Active Substance: PREDNISOLONE
     Indication: PRODUCT USED FOR UNKNOWN INDICATION
  3. VONOPRAZAN [Concomitant]
     Active Substance: VONOPRAZAN
     Indication: HELICOBACTER INFECTION
     Dates: start: 201507
  4. METRONIDAZOLE BRAND UNSPECIFIED (VIVIMED) [Suspect]
     Active Substance: METRONIDAZOLE
     Indication: HELICOBACTER INFECTION
     Dates: start: 201507

REACTIONS (1)
  - Enterocolitis haemorrhagic [Recovered/Resolved]
